FAERS Safety Report 26100258 (Version 1)
Quarter: 2025Q4

REPORT INFORMATION
  Report Type: Report from Study
  Country: US (occurrence: US)
  Receive Date: 20251128
  Receipt Date: 20251128
  Transmission Date: 20260117
  Serious: Yes (Other)
  Sender: ABBVIE
  Company Number: US-ABBVIE-6566955

PATIENT
  Age: 52 Year
  Sex: Female

DRUGS (2)
  1. RINVOQ [Suspect]
     Active Substance: UPADACITINIB
     Indication: Rheumatoid arthritis
     Dosage: STRENGTH : 15 MG
     Route: 048
     Dates: start: 20250531, end: 20251009
  2. RINVOQ [Suspect]
     Active Substance: UPADACITINIB
     Indication: Rheumatoid arthritis
     Dosage: STRENGTH : 15 MG
     Route: 048
     Dates: start: 20251023

REACTIONS (8)
  - Limb operation [Unknown]
  - Hiccups [Not Recovered/Not Resolved]
  - Joint deformity [Unknown]
  - Pain [Unknown]
  - General physical health deterioration [Unknown]
  - Gastrooesophageal reflux disease [Not Recovered/Not Resolved]
  - Restless legs syndrome [Unknown]
  - Arthralgia [Not Recovered/Not Resolved]

NARRATIVE: CASE EVENT DATE: 20250101
